FAERS Safety Report 21310859 (Version 1)
Quarter: 2022Q3

REPORT INFORMATION
  Report Type: Spontaneous
  Country: US (occurrence: US)
  Receive Date: 20220909
  Receipt Date: 20220909
  Transmission Date: 20221027
  Serious: Yes (Other)
  Sender: FDA-Public Use
  Company Number: US-QILU TIANHE PHARMACEUTICAL CO. LTD-QLT-000010-2022

PATIENT
  Age: 54 Year
  Sex: Male

DRUGS (3)
  1. PIPERACILLIN AND TAZOBACTAM [Suspect]
     Active Substance: PIPERACILLIN SODIUM\TAZOBACTAM SODIUM
     Indication: Soft tissue infection
     Dosage: 3.375 GRAM, ONE DOSE
     Route: 042
  2. VANCOMYCIN [Concomitant]
     Active Substance: VANCOMYCIN
     Indication: Soft tissue infection
     Dosage: 1250 MILLIGRAM, 2 DOSES
     Route: 042
  3. ENOXAPARIN [Concomitant]
     Active Substance: ENOXAPARIN
     Indication: Prophylaxis
     Dosage: 40 MILLIGRAM, ONE DOSE
     Route: 058

REACTIONS (2)
  - Cross sensitivity reaction [Unknown]
  - Immune thrombocytopenia [Recovered/Resolved]
